FAERS Safety Report 24940232 (Version 1)
Quarter: 2025Q1

REPORT INFORMATION
  Report Type: Spontaneous
  Country: CA (occurrence: CA)
  Receive Date: 20250207
  Receipt Date: 20250207
  Transmission Date: 20250409
  Serious: Yes (Hospitalization, Other)
  Sender: NOVO NORDISK
  Company Number: CA-NOVOPROD-1324888

PATIENT
  Age: 47 Year
  Sex: Female
  Weight: 136 kg

DRUGS (2)
  1. OZEMPIC [Suspect]
     Active Substance: SEMAGLUTIDE
     Indication: Weight control
     Dosage: 1 MG, QW
     Route: 058
     Dates: start: 202304, end: 20230627
  2. TEZEPELUMAB [Suspect]
     Active Substance: TEZEPELUMAB
     Indication: Asthma
     Dosage: 210 MG, QM
     Route: 058
     Dates: start: 202305, end: 20230616

REACTIONS (5)
  - Pneumonia necrotising [Recovered/Resolved]
  - Choking [Unknown]
  - Aspiration [Unknown]
  - Dyspnoea [Unknown]
  - Product use in unapproved indication [Recovered/Resolved]

NARRATIVE: CASE EVENT DATE: 20230401
